FAERS Safety Report 8172441-0 (Version None)
Quarter: 2012Q1

REPORT INFORMATION
  Report Type: 
  Country: None (occurrence: None)
  Receive Date: 20120224
  Receipt Date: 20120224
  Transmission Date: 20120608
  Serious: Yes (Hospitalization)
  Sender: FDA-Public Use
  Company Number: None

PATIENT
  Age: 62 Year
  Sex: Male
  Weight: 103 kg

DRUGS (2)
  1. SPIRIVA [Suspect]
     Dates: start: 20111219, end: 20120118
  2. SYMBICORT [Suspect]

REACTIONS (4)
  - HEADACHE [None]
  - VISION BLURRED [None]
  - OROPHARYNGEAL PAIN [None]
  - CEREBRAL SMALL VESSEL ISCHAEMIC DISEASE [None]
